FAERS Safety Report 22203100 (Version 1)
Quarter: 2023Q2

REPORT INFORMATION
  Report Type: Spontaneous
  Country: US (occurrence: US)
  Receive Date: 20230412
  Receipt Date: 20230412
  Transmission Date: 20230721
  Serious: No
  Sender: FDA-Public Use
  Company Number: US-PFIZER INC-202300147287

PATIENT
  Age: 54 Year
  Sex: Female

DRUGS (3)
  1. PAXLOVID [Suspect]
     Active Substance: NIRMATRELVIR\RITONAVIR
     Indication: COVID-19 treatment
     Dosage: UNK
     Dates: start: 20230404
  2. LORBRENA [Concomitant]
     Active Substance: LORLATINIB
     Indication: Metastases to liver
     Dosage: STOP TAKING LORBRENA WHILE TAKING PAXLOVID
  3. LORBRENA [Concomitant]
     Active Substance: LORLATINIB
     Indication: Lung neoplasm malignant

REACTIONS (1)
  - Nausea [Unknown]

NARRATIVE: CASE EVENT DATE: 20230405
